FAERS Safety Report 21571010 (Version 1)
Quarter: 2022Q4

REPORT INFORMATION
  Report Type: Spontaneous
  Country: US (occurrence: None)
  Receive Date: 20221109
  Receipt Date: 20221109
  Transmission Date: 20230112
  Serious: No
  Sender: FDA-Public Use
  Company Number: 2022A345607

PATIENT
  Age: 73 Year
  Sex: Female
  Weight: 60.3 kg

DRUGS (1)
  1. BEVESPI AEROSPHERE [Suspect]
     Active Substance: FORMOTEROL FUMARATE\GLYCOPYRROLATE
     Indication: Chronic obstructive pulmonary disease
     Route: 055
     Dates: start: 2021

REACTIONS (5)
  - Dyspnoea [Not Recovered/Not Resolved]
  - Frustration tolerance decreased [Unknown]
  - Product dose omission issue [Not Recovered/Not Resolved]
  - Wrong technique in device usage process [Unknown]
  - Device delivery system issue [Unknown]

NARRATIVE: CASE EVENT DATE: 20210101
